FAERS Safety Report 6427803-6 (Version None)
Quarter: 2009Q4

REPORT INFORMATION
  Report Type: 
  Country: None (occurrence: None)
  Receive Date: 20091104
  Receipt Date: 20091104
  Transmission Date: 20100525
  Serious: Yes (Life-Threatening, Hospitalization)
  Sender: FDA-Public Use
  Company Number: None

PATIENT
  Sex: Female
  Weight: 100.6985 kg

DRUGS (9)
  1. BRONK AID (EPHEDRINE SULFATE W/ GUAIFENESIN) [Suspect]
     Indication: ASTHMA
     Dosage: ONE PILL 8 HOURS AND ORALLY BEGINNING (ON AND OFF) APRIL OR MAY 2009
     Route: 048
     Dates: start: 20090101, end: 20091001
  2. BRONK AID (EPHEDRINE SULFATE W/ GUAIFENESIN) [Suspect]
     Indication: INCREASED UPPER AIRWAY SECRETION
     Dosage: ONE PILL 8 HOURS AND ORALLY BEGINNING (ON AND OFF) APRIL OR MAY 2009
     Route: 048
     Dates: start: 20090101, end: 20091001
  3. SYNTHROID [Concomitant]
  4. SINGULAIR [Concomitant]
  5. ZYRTEC [Concomitant]
  6. ADVAIR DISKUS 100/50 [Concomitant]
  7. BENADRYL [Concomitant]
  8. ALBUTEROL [Concomitant]
  9. MULTI-VITAMIN [Concomitant]

REACTIONS (6)
  - DYSPNOEA [None]
  - ERYTHEMA [None]
  - LUNG DISORDER [None]
  - OEDEMA PERIPHERAL [None]
  - PRURITUS [None]
  - SWELLING FACE [None]
